FAERS Safety Report 22356594 (Version 1)
Quarter: 2023Q2

REPORT INFORMATION
  Report Type: Spontaneous
  Country: FR (occurrence: FR)
  Receive Date: 20230523
  Receipt Date: 20230523
  Transmission Date: 20230722
  Serious: Yes (Death, Life-Threatening)
  Sender: FDA-Public Use
  Company Number: None

PATIENT
  Age: 33 Year
  Sex: Male
  Weight: 53 kg

DRUGS (5)
  1. ETOPOSIDE [Suspect]
     Active Substance: ETOPOSIDE
     Indication: Seminoma
     Dosage: 20 MILLIGRAM/SQ. METER, QD, FROM D1 TO D5,
     Route: 042
     Dates: start: 20221219, end: 20230225
  2. BLEOMYCIN SULFATE [Suspect]
     Active Substance: BLEOMYCIN SULFATE
     Indication: Seminoma
     Dosage: 30 MILLIGRAM, QD, ON D1, D8, D15
     Route: 042
     Dates: start: 20221219, end: 20230306
  3. IPRATROPIUM BROMIDE\FENOTEROL HYDROBROMIDE [Concomitant]
     Active Substance: FENOTEROL HYDROBROMIDE\IPRATROPIUM BROMIDE
     Indication: Chronic obstructive pulmonary disease
     Dosage: UNK, TAKEN ON DEMAND
     Route: 055
  4. CISPLATIN [Concomitant]
     Active Substance: CISPLATIN
     Indication: Seminoma
     Dosage: 100 MILLIGRAM/SQ. METER, QD, FROM D1 TO D5
     Route: 042
     Dates: start: 20221219, end: 20230225
  5. ANORO ELLIPTA [Concomitant]
     Active Substance: UMECLIDINIUM BROMIDE\VILANTEROL TRIFENATATE
     Indication: Chronic obstructive pulmonary disease
     Dosage: 1 DOSAGE FORM, QD, 1 IN THE MORNING
     Route: 055

REACTIONS (1)
  - Acute interstitial pneumonitis [Fatal]

NARRATIVE: CASE EVENT DATE: 20230402
